FAERS Safety Report 8375160-0 (Version None)
Quarter: 2012Q2

REPORT INFORMATION
  Report Type: 
  Country: None (occurrence: None)
  Receive Date: 20120521
  Receipt Date: 20120502
  Transmission Date: 20120825
  Serious: Yes (Death, Hospitalization)
  Sender: FDA-Public Use
  Company Number: DE-ACTELION-A-US2007-14980

PATIENT

DRUGS (3)
  1. VENTAVIS [Suspect]
     Indication: PULMONARY ARTERIAL HYPERTENSION
     Dosage: UNK, UNK
     Route: 055
     Dates: start: 20060505
  2. BOSENTAN [Concomitant]
     Indication: PULMONARY ARTERIAL HYPERTENSION
  3. AZATHIOPRINE SODIUM [Concomitant]
     Indication: PULMONARY HYPERTENSION
     Dosage: 50 MG, BID
     Route: 048
     Dates: start: 20040101, end: 20070304

REACTIONS (4)
  - PULMONARY ARTERIAL HYPERTENSION [None]
  - CONDITION AGGRAVATED [None]
  - DEATH [None]
  - TRANSPLANT EVALUATION [None]
